FAERS Safety Report 7519817-X (Version None)
Quarter: 2011Q2

REPORT INFORMATION
  Report Type: 
  Country: None (occurrence: None)
  Receive Date: 20110524
  Receipt Date: 20110511
  Transmission Date: 20111010
  Serious: Yes (Other)
  Sender: FDA-Public Use
  Company Number: 2011P1006419

PATIENT
  Age: 41 Year
  Sex: Female
  Weight: 42.1845 kg

DRUGS (5)
  1. LAMOTRIGINE [Suspect]
     Indication: SENSORY DISTURBANCE
     Dosage: 200 MG, QD, PO; 400 MG, QD. PO; 200 MG, QD, PO
     Route: 048
     Dates: start: 20081001, end: 20110201
  2. LAMOTRIGINE [Suspect]
     Indication: SENSORY DISTURBANCE
     Dosage: 200 MG, QD, PO; 400 MG, QD. PO; 200 MG, QD, PO
     Route: 048
     Dates: start: 20110201, end: 20110421
  3. BIRTH CONTROL PILLS [Concomitant]
  4. VALIUM [Concomitant]
  5. EFFEXOR [Concomitant]

REACTIONS (10)
  - LYMPHADENOPATHY [None]
  - CHILLS [None]
  - MUSCULAR WEAKNESS [None]
  - WEIGHT DECREASED [None]
  - MUSCULOSKELETAL STIFFNESS [None]
  - BEDRIDDEN [None]
  - DRUG DISPENSING ERROR [None]
  - INCORRECT DOSE ADMINISTERED [None]
  - MYALGIA [None]
  - TREMOR [None]
